FAERS Safety Report 21518944 (Version 1)
Quarter: 2022Q4

REPORT INFORMATION
  Report Type: Spontaneous
  Country: US (occurrence: US)
  Receive Date: 20221028
  Receipt Date: 20221028
  Transmission Date: 20230113
  Serious: No
  Sender: FDA-Public Use
  Company Number: US-NOVARTISTESTPH-NVSC2022US238912

PATIENT
  Sex: Female

DRUGS (2)
  1. SCEMBLIX [Suspect]
     Active Substance: ASCIMINIB HYDROCHLORIDE
     Indication: Chronic myeloid leukaemia
     Dosage: 200 MG, BID
     Route: 065
  2. SCEMBLIX [Suspect]
     Active Substance: ASCIMINIB HYDROCHLORIDE
     Dosage: 160 MG, BID
     Route: 065

REACTIONS (5)
  - Muscle disorder [Unknown]
  - Eye inflammation [Unknown]
  - Fatigue [Unknown]
  - Rash [Unknown]
  - Dry eye [Unknown]
